FAERS Safety Report 8939163 (Version 2)
Quarter: 2012Q4

REPORT INFORMATION
  Report Type: 
  Country: US (occurrence: US)
  Receive Date: 20121203
  Receipt Date: 20121226
  Transmission Date: 20130627
  Serious: No
  Sender: FDA-Public Use
  Company Number: US-PFIZER INC-2012301823

PATIENT
  Age: 58 Year
  Sex: Female

DRUGS (2)
  1. LYRICA [Suspect]
     Indication: CHRONIC PAIN
     Dosage: 75, 2x/day
     Dates: start: 20120703
  2. LYRICA [Suspect]
     Indication: LUMBAR RADICULOPATHY

REACTIONS (1)
  - Dizziness [Unknown]
